FAERS Safety Report 8555525-4 (Version None)
Quarter: 2012Q3

REPORT INFORMATION
  Report Type: 
  Country: None (occurrence: None)
  Receive Date: 20120731
  Receipt Date: 20111128
  Transmission Date: 20120928
  Serious: No
  Sender: FDA-Public Use
  Company Number: US-ASTRAZENECA-2010SE52698

PATIENT
  Age: 57 Year
  Sex: Female
  Weight: 104.3 kg

DRUGS (38)
  1. SEROQUEL [Suspect]
     Route: 048
  2. SEROQUEL [Suspect]
     Route: 048
  3. SEROQUEL [Suspect]
     Route: 048
  4. SEROQUEL [Suspect]
     Route: 048
  5. SEROQUEL [Suspect]
     Route: 048
  6. SEROQUEL [Suspect]
     Route: 048
  7. SEROQUEL [Suspect]
     Route: 048
  8. SEROQUEL [Suspect]
     Route: 048
  9. IMITREX [Concomitant]
     Indication: MIGRAINE
     Route: 048
  10. SEROQUEL [Suspect]
     Route: 048
  11. SEROQUEL [Suspect]
     Route: 048
  12. SEROQUEL [Suspect]
     Route: 048
  13. SEROQUEL [Suspect]
     Indication: SLEEP DISORDER
     Route: 048
     Dates: start: 20070101, end: 20101101
  14. SEROQUEL [Suspect]
     Route: 048
  15. SEROQUEL [Suspect]
     Route: 048
  16. SEROQUEL [Suspect]
     Route: 048
  17. FIORINAL [Concomitant]
     Indication: MIGRAINE
     Route: 048
  18. SEROQUEL [Suspect]
     Indication: MAJOR DEPRESSION
     Route: 048
     Dates: start: 20070101, end: 20101101
  19. SEROQUEL [Suspect]
     Indication: PAIN
     Route: 048
     Dates: start: 20070101, end: 20101101
  20. SEROQUEL [Suspect]
     Route: 048
  21. LORTAB [Concomitant]
     Indication: PAIN
     Dosage: 10/500 MG AS REQUIRED
     Route: 048
  22. SKELAXIN [Concomitant]
     Indication: MUSCLE RELAXANT THERAPY
     Route: 048
  23. NEURONTIN [Concomitant]
     Indication: FIBROMYALGIA
     Route: 048
  24. NEXIUM [Concomitant]
     Indication: GASTRIC DISORDER
     Route: 048
  25. SEROQUEL [Suspect]
     Indication: INSOMNIA
     Route: 048
     Dates: start: 20070101, end: 20101101
  26. SEROQUEL [Suspect]
     Route: 048
  27. SEROQUEL [Suspect]
     Route: 048
  28. SEROQUEL [Suspect]
     Route: 048
  29. EFFEXOR [Concomitant]
     Route: 048
  30. VOLTAREN [Concomitant]
     Indication: NECK PAIN
     Route: 061
  31. MORPHINE SULFATE [Concomitant]
     Indication: PAIN
     Dosage: TID
     Route: 048
  32. SEROQUEL [Suspect]
     Indication: BIPOLAR DISORDER
     Route: 048
     Dates: start: 20070101, end: 20101101
  33. SEROQUEL [Suspect]
     Route: 048
  34. SEROQUEL [Suspect]
     Route: 048
  35. EFFEXOR [Concomitant]
     Indication: MENTAL DISORDER
     Route: 048
     Dates: end: 20101101
  36. RESTORIL [Concomitant]
     Indication: SLEEP DISORDER
     Route: 048
  37. MS CONTIN [Concomitant]
     Indication: PAIN
     Route: 048
  38. CLONAZEPAM [Concomitant]
     Indication: ANXIETY
     Route: 048

REACTIONS (30)
  - NERVOUSNESS [None]
  - RESTLESSNESS [None]
  - MIGRAINE [None]
  - HEADACHE [None]
  - DEHYDRATION [None]
  - SLEEP APNOEA SYNDROME [None]
  - MENTAL DISORDER [None]
  - DRUG INTOLERANCE [None]
  - HANGOVER [None]
  - POOR QUALITY SLEEP [None]
  - NAUSEA [None]
  - MUSCULOSKELETAL PAIN [None]
  - DYSPHAGIA [None]
  - VOMITING [None]
  - PAIN [None]
  - MIDDLE INSOMNIA [None]
  - WRONG TECHNIQUE IN DRUG USAGE PROCESS [None]
  - HALLUCINATION [None]
  - FATIGUE [None]
  - OEDEMA PERIPHERAL [None]
  - PARANOIA [None]
  - OFF LABEL USE [None]
  - INCREASED APPETITE [None]
  - DRUG DOSE OMISSION [None]
  - MALAISE [None]
  - INSOMNIA [None]
  - IMPAIRED WORK ABILITY [None]
  - NECK PAIN [None]
  - ARRHYTHMIA [None]
  - WEIGHT DECREASED [None]
